FAERS Safety Report 9025508 (Version 2)
Quarter: 2013Q1

REPORT INFORMATION
  Report Type: Spontaneous
  Country: US (occurrence: US)
  Receive Date: 20130122
  Receipt Date: 20130131
  Transmission Date: 20140127
  Serious: Yes (Hospitalization, Other)
  Sender: FDA-Public Use
  Company Number: US-BAXTER-2013BAX002066

PATIENT
  Age: 44 None
  Sex: Male

DRUGS (2)
  1. DIANEAL LOW CALCIUM [Suspect]
     Indication: PERITONEAL DIALYSIS
     Route: 033
  2. EXTRANEAL [Suspect]
     Indication: PERITONEAL DIALYSIS
     Route: 033

REACTIONS (6)
  - Condition aggravated [Unknown]
  - Haematemesis [Unknown]
  - Nausea [Unknown]
  - Vomiting [Unknown]
  - Peritonitis bacterial [Not Recovered/Not Resolved]
  - Peritonitis [Recovered/Resolved]
